FAERS Safety Report 7095762-1 (Version None)
Quarter: 2010Q4

REPORT INFORMATION
  Report Type: 
  Country: None (occurrence: None)
  Receive Date: 20101102
  Receipt Date: 20101101
  Transmission Date: 20110411
  Serious: Yes (Death, Hospitalization, Disabling)
  Sender: FDA-Public Use
  Company Number: ADE2007-0062

PATIENT
  Age: 72 Year
  Sex: Female

DRUGS (6)
  1. MIRTAZAPINE [Suspect]
     Indication: AGITATION
     Dosage: 30 MG, ORAL
     Route: 048
     Dates: start: 20070907
  2. MIRTAZAPINE [Suspect]
     Indication: DEPRESSION
     Dosage: 30 MG, ORAL
     Route: 048
     Dates: start: 20070907
  3. RISPERIDONE [Suspect]
     Indication: AGITATION
     Dosage: 1 MG, ORAL
     Route: 048
     Dates: start: 20070907
  4. RISPERIDONE [Suspect]
     Indication: DEPRESSION
     Dosage: 1 MG, ORAL
     Route: 048
     Dates: start: 20070907
  5. LORAZEPAM [Concomitant]
  6. QUETIAPINE [Concomitant]

REACTIONS (1)
  - CEREBROVASCULAR ACCIDENT [None]
